FAERS Safety Report 18307075 (Version 2)
Quarter: 2020Q4

REPORT INFORMATION
  Report Type: Spontaneous
  Country: US (occurrence: US)
  Receive Date: 20200924
  Receipt Date: 20201104
  Transmission Date: 20210113
  Serious: No
  Sender: FDA-Public Use
  Company Number: US-TEVA-2020-US-1830562

PATIENT
  Age: 60 Year
  Sex: Male

DRUGS (1)
  1. PERMETHRIN TEVA [Suspect]
     Active Substance: PERMETHRIN
     Indication: ACARODERMATITIS
     Route: 061
     Dates: start: 202007

REACTIONS (2)
  - Pruritus [Unknown]
  - Drug ineffective [Unknown]

NARRATIVE: CASE EVENT DATE: 2020
